FAERS Safety Report 24279115 (Version 2)
Quarter: 2024Q4

REPORT INFORMATION
  Report Type: Spontaneous
  Country: US (occurrence: US)
  Receive Date: 20240903
  Receipt Date: 20241007
  Transmission Date: 20250115
  Serious: Yes (Death, Other)
  Sender: INCYTE
  Company Number: US-INCYTE CORPORATION-2024IN008356

PATIENT

DRUGS (1)
  1. MONJUVI [Suspect]
     Active Substance: TAFASITAMAB-CXIX
     Indication: Diffuse large B-cell lymphoma
     Dosage: 763.2 MILLIGRAM (D1, D4, D8, D15, D22; 28D-D1, D15) (DOSE ESCALATION - CYCLE 1-4)
     Route: 065
     Dates: start: 20240621

REACTIONS (2)
  - Death [Fatal]
  - Product availability issue [Unknown]
